FAERS Safety Report 25804179 (Version 1)
Quarter: 2025Q3

REPORT INFORMATION
  Report Type: Spontaneous
  Country: IN (occurrence: IN)
  Receive Date: 20250915
  Receipt Date: 20250915
  Transmission Date: 20251020
  Serious: Yes (Death)
  Sender: INCYTE
  Company Number: IN-002147023-NVSC2025IN142992

PATIENT
  Age: 9 Year

DRUGS (1)
  1. RUXOLITINIB [Suspect]
     Active Substance: RUXOLITINIB
     Indication: Gene mutation
     Dosage: 0.4 MG/KG, QD (5 MG)
     Route: 065

REACTIONS (2)
  - Pulmonary tuberculosis [Fatal]
  - Off label use [Unknown]
